FAERS Safety Report 7558355-5 (Version None)
Quarter: 2011Q2

REPORT INFORMATION
  Report Type: 
  Country: None (occurrence: None)
  Receive Date: 20110620
  Receipt Date: 20110610
  Transmission Date: 20111010
  Serious: Yes (Hospitalization)
  Sender: FDA-Public Use
  Company Number: PHHY2011ES41642

PATIENT
  Age: 41 Year
  Sex: Male

DRUGS (6)
  1. PREDNISONE [Suspect]
     Dosage: 12.5 MG PER DAY
  2. METHOTREXATE [Suspect]
     Dosage: 15 MG, QW
  3. NAPROXEN [Suspect]
     Dosage: 500 MG, Q12H
  4. CIPROFLOXACIN [Suspect]
     Indication: URETHRITIS
     Dosage: UNK
     Dates: start: 20050701
  5. METHOTREXATE [Suspect]
     Dosage: 10 MG, QW
  6. PREDNISONE [Suspect]
     Dosage: 15 MG PER DAY

REACTIONS (16)
  - DIARRHOEA [None]
  - OSTEOARTHRITIS [None]
  - TENDONITIS [None]
  - HEPATITIS B [None]
  - CELL DEATH [None]
  - PYREXIA [None]
  - ARTHRALGIA [None]
  - NAUSEA [None]
  - RENAL FAILURE [None]
  - CHOLESTASIS [None]
  - SACROILIITIS [None]
  - HEPATOMEGALY [None]
  - DRUG WITHDRAWAL SYNDROME [None]
  - COAGULOPATHY [None]
  - ARTHRITIS [None]
  - JAUNDICE [None]
